FAERS Safety Report 26128883 (Version 2)
Quarter: 2025Q4

REPORT INFORMATION
  Report Type: Spontaneous
  Country: EU (occurrence: EU)
  Receive Date: 20251208
  Receipt Date: 20251229
  Transmission Date: 20260117
  Serious: Yes (Other)
  Sender: SANOFI AVENTIS
  Company Number: EU-SANOFI-02738639

PATIENT
  Age: 6 Month
  Sex: Male

DRUGS (1)
  1. BEYFORTUS [Suspect]
     Active Substance: NIRSEVIMAB-ALIP
     Indication: Antiviral prophylaxis
     Dosage: 100 MG, 1X
     Dates: start: 20250916, end: 20250916

REACTIONS (6)
  - Respiratory syncytial virus bronchiolitis [Unknown]
  - Rhinitis [Unknown]
  - Cough [Recovered/Resolved]
  - Wheezing [Unknown]
  - Poor feeding infant [Unknown]
  - Drug ineffective [Unknown]

NARRATIVE: CASE EVENT DATE: 20251123
